FAERS Safety Report 6130449-0 (Version None)
Quarter: 2009Q1

REPORT INFORMATION
  Report Type: 
  Country: None (occurrence: None)
  Receive Date: 20090323
  Receipt Date: 20090308
  Transmission Date: 20090719
  Serious: Yes (Other)
  Sender: FDA-Public Use
  Company Number: 2008S1000749

PATIENT
  Age: 75 Year
  Sex: Female
  Weight: 73.4827 kg

DRUGS (11)
  1. PHOSPHOSODA FLAVOR NOT SPECIFIC [Suspect]
     Indication: COLONOSCOPY
     Dosage: 90 ML; TOTAL; PO
     Route: 048
     Dates: start: 20060125, end: 20060126
  2. PREMARIN [Concomitant]
  3. FOSAMAX [Concomitant]
  4. PRINIZIDE /00977901/ [Concomitant]
  5. CALCIUM [Concomitant]
  6. VITAMIN  E /001101501/ [Concomitant]
  7. VITAMIN C /00008001/ [Concomitant]
  8. FLOVENT [Concomitant]
  9. VENTOLIN [Concomitant]
  10. VICODIN [Concomitant]
  11. DULCOLAX /00064401/ [Concomitant]

REACTIONS (4)
  - DRUG TOXICITY [None]
  - HYPERPHOSPHATAEMIA [None]
  - RENAL FAILURE [None]
  - RENAL FAILURE CHRONIC [None]
